FAERS Safety Report 23776722 (Version 1)
Quarter: 2024Q2

REPORT INFORMATION
  Report Type: Spontaneous
  Country: FR (occurrence: FR)
  Receive Date: 20240424
  Receipt Date: 20240424
  Transmission Date: 20240716
  Serious: Yes (Hospitalization, Other)
  Sender: FDA-Public Use
  Company Number: None

PATIENT

DRUGS (4)
  1. LAMOTRIGINE [Suspect]
     Active Substance: LAMOTRIGINE
     Indication: Bipolar disorder
     Dosage: 25 MG, QD (25 MG/D)
     Route: 048
     Dates: start: 20240223, end: 20240322
  2. MEROPENEM ANHYDROUS [Suspect]
     Active Substance: MEROPENEM ANHYDROUS
     Indication: Pyelonephritis acute
     Dosage: 6 G, QD (6G/D)
     Route: 042
     Dates: start: 20240125, end: 20240205
  3. MEROPENEM ANHYDROUS [Suspect]
     Active Substance: MEROPENEM ANHYDROUS
     Dosage: 6 G, QD (6G/D)
     Route: 042
     Dates: start: 20240219, end: 20240220
  4. MEROPENEM ANHYDROUS [Suspect]
     Active Substance: MEROPENEM ANHYDROUS
     Dosage: 6 G, QD (6 G/D)
     Route: 042
     Dates: start: 20240226, end: 20240322

REACTIONS (4)
  - Agranulocytosis [Recovering/Resolving]
  - Acute kidney injury [Recovering/Resolving]
  - Eosinophilia [Recovering/Resolving]
  - Pruritus [Recovering/Resolving]

NARRATIVE: CASE EVENT DATE: 20240304
